FAERS Safety Report 8011454-6 (Version None)
Quarter: 2011Q4

REPORT INFORMATION
  Report Type: 
  Country: None (occurrence: None)
  Receive Date: 20111228
  Receipt Date: 20111215
  Transmission Date: 20120403
  Serious: Yes (Other)
  Sender: FDA-Public Use
  Company Number: US-ARROW GEN-2011-22134

PATIENT
  Age: 11 Year
  Sex: Male

DRUGS (4)
  1. RISPERIDONE [Suspect]
     Indication: PSYCHOTIC BEHAVIOUR
     Dosage: 1.125 MG, DAILY
  2. VALPROATE SODIUM [Suspect]
     Indication: CONVULSION
     Dosage: UNK
  3. METHYLPHENIDATE HCL [Suspect]
     Indication: ATTENTION DEFICIT/HYPERACTIVITY DISORDER
     Dosage: 10 MG, UNK
  4. VALPROATE SODIUM [Suspect]
     Dosage: 250 MG, BID

REACTIONS (12)
  - ABNORMAL BEHAVIOUR [None]
  - HYPERAMMONAEMIA [None]
  - PSYCHOTIC DISORDER [None]
  - MANIA [None]
  - CONDITION AGGRAVATED [None]
  - HALLUCINATIONS, MIXED [None]
  - INAPPROPRIATE AFFECT [None]
  - DISINHIBITION [None]
  - AGGRESSION [None]
  - DELUSION [None]
  - PRESSURE OF SPEECH [None]
  - AGITATION [None]
